FAERS Safety Report 21471885 (Version 1)
Quarter: 2022Q4

REPORT INFORMATION
  Report Type: Spontaneous
  Country: CA (occurrence: CA)
  Receive Date: 20221018
  Receipt Date: 20221018
  Transmission Date: 20230113
  Serious: Yes (Hospitalization)
  Sender: FDA-Public Use
  Company Number: CA-JNJFOC-20221027328

PATIENT
  Age: 6 Week

DRUGS (3)
  1. REMICADE [Suspect]
     Active Substance: INFLIXIMAB
     Indication: Product used for unknown indication
     Route: 063
  2. REMICADE [Suspect]
     Active Substance: INFLIXIMAB
     Route: 063
  3. PREDNISONE [Concomitant]
     Active Substance: PREDNISONE
     Route: 063

REACTIONS (2)
  - Exposure via breast milk [Unknown]
  - Lymph gland infection [Unknown]
